FAERS Safety Report 10931880 (Version 1)
Quarter: 2015Q1

REPORT INFORMATION
  Report Type: Spontaneous
  Country: US (occurrence: US)
  Receive Date: 20150319
  Receipt Date: 20150319
  Transmission Date: 20150721
  Serious: No
  Sender: FDA-Public Use
  Company Number: US-GLAXOSMITHKLINE-US2015GSK036743

PATIENT
  Sex: Female

DRUGS (6)
  1. FLONASE [Suspect]
     Active Substance: FLUTICASONE PROPIONATE
     Indication: MULTIPLE ALLERGIES
     Dosage: UNK
     Route: 045
  2. PREDNISONE. [Suspect]
     Active Substance: PREDNISONE
     Indication: MULTIPLE ALLERGIES
     Dosage: UNK
  3. PREDNISONE. [Suspect]
     Active Substance: PREDNISONE
     Indication: EAR INFECTION
  4. FLONASE [Suspect]
     Active Substance: FLUTICASONE PROPIONATE
     Indication: RHINORRHOEA
  5. FLONASE [Suspect]
     Active Substance: FLUTICASONE PROPIONATE
     Indication: EAR INFECTION
  6. PREDNISONE. [Suspect]
     Active Substance: PREDNISONE
     Indication: RHINORRHOEA

REACTIONS (1)
  - Dysphonia [Unknown]
